FAERS Safety Report 14229489 (Version 3)
Quarter: 2018Q3

REPORT INFORMATION
  Report Type: Report from Study
  Country: GB (occurrence: GB)
  Receive Date: 20171128
  Receipt Date: 20180816
  Transmission Date: 20181010
  Serious: Yes (Other)
  Sender: FDA-Public Use
  Company Number: GB-ROCHE-1633631

PATIENT
  Sex: Male

DRUGS (7)
  1. ESBRIET [Suspect]
     Active Substance: PIRFENIDONE
     Indication: IDIOPATHIC PULMONARY FIBROSIS
     Route: 048
     Dates: start: 20150801
  2. NICORANDIL [Concomitant]
     Active Substance: NICORANDIL
  3. ATORVASTATIN [Concomitant]
     Active Substance: ATORVASTATIN
     Indication: BLOOD CHOLESTEROL INCREASED
     Route: 048
  4. PERINDOPRIL [Concomitant]
     Active Substance: PERINDOPRIL
     Indication: BLOOD PRESSURE INCREASED
     Route: 048
  5. ALLOPURINOL. [Concomitant]
     Active Substance: ALLOPURINOL
     Indication: GOUT
     Route: 048
  6. ASPIRIN. [Concomitant]
     Active Substance: ASPIRIN
     Route: 048
  7. ESBRIET [Suspect]
     Active Substance: PIRFENIDONE
     Route: 048
     Dates: start: 20150812

REACTIONS (17)
  - Dizziness [Unknown]
  - Productive cough [Recovered/Resolved]
  - Decreased appetite [Unknown]
  - Cough [Not Recovered/Not Resolved]
  - Loss of consciousness [Unknown]
  - Flushing [Unknown]
  - Dyspnoea [Unknown]
  - Skin tightness [Unknown]
  - Pruritus [Unknown]
  - Photosensitivity reaction [Unknown]
  - Somnolence [Unknown]
  - Chest discomfort [Unknown]
  - Weight decreased [Unknown]
  - Viral infection [Unknown]
  - Walking disability [Unknown]
  - Cardiac disorder [Unknown]
  - Dysphemia [Unknown]
